FAERS Safety Report 25848046 (Version 1)
Quarter: 2025Q3

REPORT INFORMATION
  Report Type: Spontaneous
  Country: US (occurrence: US)
  Receive Date: 20250925
  Receipt Date: 20250925
  Transmission Date: 20251020
  Serious: Yes (Other)
  Sender: AMGEN
  Company Number: US-AMGEN-USASP2025188169

PATIENT
  Age: 78 Year
  Sex: Male

DRUGS (9)
  1. BEVACIZUMAB [Suspect]
     Active Substance: BEVACIZUMAB
     Indication: Cystoid macular oedema
  2. LATANOPROST [Concomitant]
     Active Substance: LATANOPROST
     Indication: Cystoid macular oedema
     Route: 065
  3. LATANOPROST [Concomitant]
     Active Substance: LATANOPROST
     Dosage: UNK UNK, QD (BUNOD 0.024%)
     Route: 065
  4. NETARSUDIL [Concomitant]
     Active Substance: NETARSUDIL
     Indication: Cystoid macular oedema
     Route: 065
  5. TRIAMCINOLONE [Concomitant]
     Active Substance: TRIAMCINOLONE
     Indication: Cystoid macular oedema
  6. DEXAMETHASONE [Concomitant]
     Active Substance: DEXAMETHASONE
     Indication: Cystoid macular oedema
     Route: 065
  7. LATANOPROSTENE BUNOD [Concomitant]
     Active Substance: LATANOPROSTENE BUNOD
     Indication: Cystoid macular oedema
     Dosage: 0.024 PERCENT, QD
     Route: 065
  8. TIMOLOL [Concomitant]
     Active Substance: TIMOLOL
     Indication: Glaucoma
     Dosage: UNK UNK, BID (0.5 PERCENT)
     Route: 065
  9. BRIMONIDINE TARTRATE\BRINZOLAMIDE [Concomitant]
     Active Substance: BRIMONIDINE TARTRATE\BRINZOLAMIDE
     Indication: Glaucoma
     Dosage: UNK UNK, TID (1 PERCENT/0.2 PERCENT)
     Route: 065

REACTIONS (2)
  - Cystoid macular oedema [Recovered/Resolved]
  - Off label use [Unknown]
